FAERS Safety Report 11630989 (Version 3)
Quarter: 2015Q4

REPORT INFORMATION
  Report Type: Spontaneous
  Country: US (occurrence: US)
  Receive Date: 20151014
  Receipt Date: 20151023
  Transmission Date: 20160304
  Serious: Yes (Hospitalization)
  Sender: FDA-Public Use
  Company Number: US-GLAXOSMITHKLINE-US2015145441

PATIENT
  Age: 72 Year
  Sex: Female

DRUGS (4)
  1. ADVAIR DISKUS [Suspect]
     Active Substance: FLUTICASONE PROPIONATE\SALMETEROL XINAFOATE
     Indication: ASTHMA
     Dosage: UNK, PRN
     Route: 055
     Dates: start: 2011
  2. ADVAIR DISKUS [Suspect]
     Active Substance: FLUTICASONE PROPIONATE\SALMETEROL XINAFOATE
     Indication: BRONCHITIS
  3. LEVOTHYROXINE. [Concomitant]
     Active Substance: LEVOTHYROXINE
  4. ADVAIR DISKUS [Suspect]
     Active Substance: FLUTICASONE PROPIONATE\SALMETEROL XINAFOATE
     Indication: BRONCHIECTASIS
     Dosage: 1 PUFF(S), BID
     Route: 055

REACTIONS (9)
  - Secretion discharge [Recovered/Resolved]
  - Aphonia [Unknown]
  - Drug ineffective [Recovered/Resolved]
  - Bronchitis [Recovered/Resolved]
  - Asthma [Recovered/Resolved]
  - Treatment noncompliance [Recovered/Resolved]
  - Underdose [Recovered/Resolved]
  - Cough [Recovering/Resolving]
  - Dyspnoea [Recovered/Resolved]

NARRATIVE: CASE EVENT DATE: 2011
